FAERS Safety Report 8933112 (Version 1)
Quarter: 2012Q4

REPORT INFORMATION
  Report Type: 
  Country: PR (occurrence: PR)
  Receive Date: 20121129
  Receipt Date: 20121129
  Transmission Date: 20130627
  Serious: No
  Sender: FDA-Public Use
  Company Number: PR-BIOGENIDEC-2012BI054282

PATIENT
  Age: 14 Year
  Sex: Male

DRUGS (1)
  1. TYSABRI [Suspect]
     Indication: CROHN^S DISEASE
     Route: 042
     Dates: start: 20120517, end: 20121112

REACTIONS (2)
  - Therapeutic product ineffective [Not Recovered/Not Resolved]
  - Off label use [Recovered/Resolved]
